FAERS Safety Report 7916806-8 (Version None)
Quarter: 2011Q4

REPORT INFORMATION
  Report Type: 
  Country: None (occurrence: None)
  Receive Date: 20111116
  Receipt Date: 20111109
  Transmission Date: 20120403
  Serious: Yes (Hospitalization)
  Sender: FDA-Public Use
  Company Number: PT-TEVA-309119ISR

PATIENT
  Sex: Male
  Weight: 86 kg

DRUGS (6)
  1. BLEOMICINA TEVA [Suspect]
     Indication: HODGKIN'S DISEASE
     Route: 042
     Dates: start: 20111018, end: 20111018
  2. FISAPREPITANT DIMEGLUMINE [Concomitant]
     Indication: PROPHYLAXIS OF NAUSEA AND VOMITING
     Dosage: 150 MILLIGRAM;
     Route: 042
     Dates: start: 20111018, end: 20111018
  3. ONDANSENTRON  HYDROCHLORIDE [Concomitant]
     Indication: PROPHYLAXIS OF NAUSEA AND VOMITING
     Dates: start: 20111018, end: 20111018
  4. VINBLASTINE SULFATE [Concomitant]
     Indication: HODGKIN'S DISEASE
     Dosage: 10 MILLIGRAM;
     Dates: start: 20111018, end: 20111018
  5. DOXORUBICIN HCL [Concomitant]
     Dosage: 50 MILLIGRAM;
     Route: 042
     Dates: start: 20111018, end: 20111018
  6. DACARBAZINE [Concomitant]
     Indication: HODGKIN'S DISEASE
     Dosage: 800 MILLIGRAM;
     Route: 042
     Dates: start: 20111018, end: 20111018

REACTIONS (4)
  - MALAISE [None]
  - CHILLS [None]
  - HYPOTENSION [None]
  - MYALGIA [None]
